FAERS Safety Report 9135473 (Version 1)
Quarter: 2013Q1

REPORT INFORMATION
  Report Type: Spontaneous
  Country: DK (occurrence: None)
  Receive Date: 20130131
  Receipt Date: 20130131
  Transmission Date: 20140127
  Serious: Yes (Death)
  Sender: FDA-Public Use
  Company Number: 2013MA000795

PATIENT
  Age: 41 Year
  Sex: Male

DRUGS (2)
  1. FLUOXETINE [Suspect]
     Indication: DEPRESSION
     Dosage: 20  MG; UNK; PO?02/24/2012  -  03/01/2012
     Route: 048
     Dates: start: 20120224, end: 20120301
  2. ZOPICLONE [Concomitant]

REACTIONS (1)
  - Completed suicide [None]
